FAERS Safety Report 15125456 (Version 1)
Quarter: 2018Q3

REPORT INFORMATION
  Report Type: Spontaneous
  Country: RO (occurrence: RO)
  Receive Date: 20180710
  Receipt Date: 20180710
  Transmission Date: 20181010
  Serious: Yes (Hospitalization)
  Sender: FDA-Public Use
  Company Number: RO-TEVA-2018-RO-921989

PATIENT
  Age: 9 Month
  Sex: Male

DRUGS (1)
  1. ESOMEPRAZOLE [Suspect]
     Active Substance: ESOMEPRAZOLE
     Indication: GASTROOESOPHAGEAL REFLUX DISEASE
     Dosage: 5 MG/DAY
     Route: 065

REACTIONS (12)
  - Streptococcal infection [Recovering/Resolving]
  - Fontanelle bulging [Recovered/Resolved]
  - Language disorder [Not Recovered/Not Resolved]
  - Encephalitis [Recovering/Resolving]
  - Hemiplegia [Not Recovered/Not Resolved]
  - Cyanosis [Recovering/Resolving]
  - Seizure [Recovered/Resolved]
  - Partial seizures [Recovered/Resolved]
  - Bradycardia [Recovering/Resolving]
  - Motor dysfunction [Recovering/Resolving]
  - Irritability [Not Recovered/Not Resolved]
  - Hyporeflexia [Recovering/Resolving]

NARRATIVE: CASE EVENT DATE: 2015
